FAERS Safety Report 20069858 (Version 1)
Quarter: 2021Q4

REPORT INFORMATION
  Report Type: Spontaneous
  Country: US (occurrence: None)
  Receive Date: 20211113
  Receipt Date: 20211113
  Transmission Date: 20220303
  Serious: Yes (Other)
  Sender: FDA-Public Use
  Company Number: None

PATIENT
  Age: 2 Year
  Sex: Female
  Weight: 11.7 kg

DRUGS (1)
  1. MIRALAX [Suspect]
     Active Substance: POLYETHYLENE GLYCOL 3350
     Indication: Constipation
     Dosage: OTHER QUANTITY : 1 TABLESPOON(S);?FREQUENCY : AT BEDTIME;?
     Route: 048

REACTIONS (8)
  - Mental disorder [None]
  - Aggression [None]
  - Irritability [None]
  - Confusional state [None]
  - Sleep terror [None]
  - Decreased appetite [None]
  - Tremor [None]
  - Anger [None]

NARRATIVE: CASE EVENT DATE: 20211001
